FAERS Safety Report 7723284-0 (Version None)
Quarter: 2011Q3

REPORT INFORMATION
  Report Type: 
  Country: None (occurrence: None)
  Receive Date: 20110901
  Receipt Date: 20110826
  Transmission Date: 20111222
  Serious: Yes (Other)
  Sender: FDA-Public Use
  Company Number: BR-PFIZER INC-2011200531

PATIENT
  Age: 69 Year
  Sex: Female
  Weight: 70 kg

DRUGS (7)
  1. CELEBREX [Suspect]
     Indication: UPPER LIMB FRACTURE
  2. LEVOTHYROXINE SODIUM [Concomitant]
     Indication: HYPOTHYROIDISM
     Dosage: ONE TABLET (UNKNOWN DOSE), ONCE DAILY
  3. CELEBREX [Suspect]
     Indication: DENTAL OPERATION
     Dosage: 200 MG, 1X/DAY
     Route: 048
     Dates: start: 20010823
  4. CLONAZEPAM [Concomitant]
     Indication: DIZZINESS
     Dosage: ONE TABLET (UNKNOWN DOSE), ONCE DAILY
  5. LIPITOR [Concomitant]
     Indication: BLOOD CHOLESTEROL
     Dosage: ONE TABLET (UNKNOWN DOSE), ONCE DAILY
  6. CELEBREX [Suspect]
     Indication: FALL
     Dosage: UNK
     Route: 048
     Dates: start: 20110824
  7. CALCIUM [Concomitant]
     Dosage: ONE TABLET (UNKNOWN DOSE), ONCE DAILY

REACTIONS (2)
  - MACULOPATHY [None]
  - VISUAL IMPAIRMENT [None]
